FAERS Safety Report 5565327-9 (Version None)
Quarter: 2007Q4

REPORT INFORMATION
  Report Type: 
  Country: None (occurrence: None)
  Receive Date: 20071218
  Receipt Date: 20071207
  Transmission Date: 20080405
  Serious: Yes (Other)
  Sender: FDA-Public Use
  Company Number: US-PFIZER INC-2007103561

PATIENT
  Sex: Male

DRUGS (3)
  1. CELEBREX [Suspect]
  2. OXYCONTIN [Concomitant]
  3. OXYMORPHONE HYDROCHLORIDE [Concomitant]

REACTIONS (1)
  - TREMOR [None]
